FAERS Safety Report 21784871 (Version 1)
Quarter: 2022Q4

REPORT INFORMATION
  Report Type: Spontaneous
  Country: US (occurrence: None)
  Receive Date: 20221223
  Receipt Date: 20221223
  Transmission Date: 20230113
  Serious: No
  Sender: FDA-Public Use
  Company Number: None

PATIENT
  Age: 40 Year
  Sex: Female

DRUGS (1)
  1. GAMMAGARD LIQUID [Suspect]
     Active Substance: HUMAN IMMUNOGLOBULIN G
     Indication: Myasthenia gravis
     Dosage: OTHER STRENGTH : 1 GM/10ML ;?OTHER QUANTITY : 30G;?FREQUENCY : MONTHLY;?
     Route: 042
     Dates: start: 20221219

REACTIONS (4)
  - Infusion related reaction [None]
  - Cough [None]
  - Throat irritation [None]
  - Dyspnoea [None]

NARRATIVE: CASE EVENT DATE: 20221219
